FAERS Safety Report 21271221 (Version 4)
Quarter: 2022Q4

REPORT INFORMATION
  Report Type: Spontaneous
  Country: AU (occurrence: AU)
  Receive Date: 20220830
  Receipt Date: 20221011
  Transmission Date: 20230112
  Serious: Yes (Other)
  Sender: FDA-Public Use
  Company Number: AU-PFIZER INC-PV202200051186

PATIENT
  Sex: Male

DRUGS (2)
  1. ELELYSO [Suspect]
     Active Substance: TALIGLUCERASE ALFA
     Dosage: 1400 IU
     Route: 042
  2. ELELYSO [Suspect]
     Active Substance: TALIGLUCERASE ALFA
     Dosage: 1400 IU
     Route: 041

REACTIONS (6)
  - Fall [Recovered/Resolved]
  - Chest injury [Unknown]
  - Blood pressure systolic increased [Unknown]
  - Soft tissue injury [Unknown]
  - Chest pain [Unknown]
  - Stress [Unknown]
